FAERS Safety Report 8374295-6 (Version None)
Quarter: 2012Q2

REPORT INFORMATION
  Report Type: 
  Country: None (occurrence: None)
  Receive Date: 20120521
  Receipt Date: 20120514
  Transmission Date: 20120825
  Serious: Yes (Other)
  Sender: FDA-Public Use
  Company Number: PHHY2012JP040040

PATIENT
  Age: 80 Year
  Sex: Female

DRUGS (2)
  1. GRAMALIL [Concomitant]
  2. SYMMETREL [Suspect]
     Indication: DEMENTIA
     Dosage: 100 MG, DAILY
     Route: 048

REACTIONS (2)
  - DRUG LEVEL INCREASED [None]
  - DYSKINESIA [None]
